FAERS Safety Report 5792726-2 (Version None)
Quarter: 2008Q2

REPORT INFORMATION
  Report Type: 
  Country: None (occurrence: None)
  Receive Date: 20080625
  Receipt Date: 20080305
  Transmission Date: 20081010
  Serious: No
  Sender: FDA-Public Use
  Company Number: PHEH2008US02156

PATIENT
  Age: 38 Year
  Sex: Male
  Weight: 77.1 kg

DRUGS (3)
  1. TYZEKA [Suspect]
     Indication: HEPATITIS B
     Dosage: 600 MG, QD, ORAL
     Route: 048
     Dates: start: 20070809, end: 20080221
  2. PEGASYS [Concomitant]
  3. CELEXA [Concomitant]

REACTIONS (3)
  - DRUG INEFFECTIVE [None]
  - ELECTROMYOGRAM ABNORMAL [None]
  - NEUROPATHY PERIPHERAL [None]
